FAERS Safety Report 24010192 (Version 1)
Quarter: 2024Q2

REPORT INFORMATION
  Report Type: Report from Study
  Country: CO (occurrence: None)
  Receive Date: 20240625
  Receipt Date: 20240625
  Transmission Date: 20240716
  Serious: Yes (Hospitalization, Other)
  Sender: FDA-Public Use
  Company Number: 2024A141530

PATIENT
  Age: 12535 Day
  Sex: Female

DRUGS (6)
  1. LYNPARZA [Suspect]
     Active Substance: OLAPARIB
     Indication: Breast cancer
     Route: 048
     Dates: start: 20240412
  2. DOLOR [Concomitant]
  3. OLAPARIB [Concomitant]
     Active Substance: OLAPARIB
  4. VALORA [Concomitant]
  5. CEREBRO [Concomitant]
  6. PULMONAR [Concomitant]

REACTIONS (4)
  - Malignant neoplasm progression [Unknown]
  - Metastases to lung [Unknown]
  - Metastases to central nervous system [Unknown]
  - Drug ineffective [Unknown]
